FAERS Safety Report 6506119-3 (Version None)
Quarter: 2009Q4

REPORT INFORMATION
  Report Type: 
  Country: None (occurrence: None)
  Receive Date: 20091217
  Receipt Date: 20091217
  Transmission Date: 20100525
  Serious: No
  Sender: FDA-Public Use
  Company Number: None

PATIENT
  Age: 61 Year
  Sex: Female
  Weight: 59.8748 kg

DRUGS (6)
  1. COLD REMEDY ORAL MIST [Suspect]
     Dosage: Q 3 HOURS FOR 2 DAYS
     Dates: start: 20091122, end: 20091124
  2. FOSAMAX [Concomitant]
  3. PAXIL [Concomitant]
  4. CALCIUM WITH VITAMIN D [Concomitant]
  5. ASPIRIN [Concomitant]
  6. HEART ADVANTAGE PYTOSTERALS [Concomitant]

REACTIONS (1)
  - AGEUSIA [None]
